FAERS Safety Report 7503853-3 (Version None)
Quarter: 2011Q2

REPORT INFORMATION
  Report Type: 
  Country: None (occurrence: None)
  Receive Date: 20110525
  Receipt Date: 20110517
  Transmission Date: 20111010
  Serious: Yes (Hospitalization)
  Sender: FDA-Public Use
  Company Number: JP-MERCK-1105USA03093

PATIENT
  Age: 70 Year
  Sex: Female

DRUGS (3)
  1. ZOLOFT [Suspect]
     Route: 048
  2. PEPCID RPD [Suspect]
     Route: 048
     Dates: end: 20110422
  3. LOXONIN [Suspect]
     Route: 048

REACTIONS (2)
  - RED BLOOD CELL COUNT DECREASED [None]
  - WHITE BLOOD CELL COUNT DECREASED [None]
